FAERS Safety Report 6941173-6 (Version None)
Quarter: 2010Q3

REPORT INFORMATION
  Report Type: 
  Country: None (occurrence: None)
  Receive Date: 20100825
  Receipt Date: 20100608
  Transmission Date: 20110219
  Serious: No
  Sender: FDA-Public Use
  Company Number: US-BRISTOL-MYERS SQUIBB COMPANY-15139132

PATIENT
  Age: 78 Year
  Sex: Female
  Weight: 91 kg

DRUGS (8)
  1. ONGLYZA [Suspect]
     Indication: DIABETES MELLITUS
  2. BENAZEPRIL HYDROCHLORIDE [Concomitant]
  3. METOPROLOL [Concomitant]
  4. PROZAC [Concomitant]
  5. VITAMIN D [Concomitant]
  6. MULTI-VITAMIN [Concomitant]
  7. CALCIUM [Concomitant]
  8. ASPIRIN [Concomitant]

REACTIONS (1)
  - ALOPECIA [None]
